FAERS Safety Report 8148343-2 (Version None)
Quarter: 2012Q1

REPORT INFORMATION
  Report Type: 
  Country: None (occurrence: None)
  Receive Date: 20120218
  Receipt Date: 20110520
  Transmission Date: 20120608
  Serious: No
  Sender: FDA-Public Use
  Company Number: US-ALLERGAN-1106971US

PATIENT
  Sex: Female

DRUGS (1)
  1. BOTOX COSMETIC [Suspect]
     Indication: SKIN WRINKLING
     Dosage: 20 UNITS, SINGLE
     Route: 030
     Dates: start: 20110511, end: 20110511

REACTIONS (7)
  - OROPHARYNGEAL PAIN [None]
  - HYPERHIDROSIS [None]
  - EYE SWELLING [None]
  - ABDOMINAL PAIN [None]
  - DRY MOUTH [None]
  - MALAISE [None]
  - BACK PAIN [None]
